FAERS Safety Report 22255205 (Version 1)
Quarter: 2023Q2

REPORT INFORMATION
  Report Type: Spontaneous
  Country: US (occurrence: US)
  Receive Date: 20230426
  Receipt Date: 20230426
  Transmission Date: 20230722
  Serious: No
  Sender: FDA-Public Use
  Company Number: US-Blueprint Medicines Corporation-SP-US-2023-000684

PATIENT
  Sex: Female

DRUGS (5)
  1. AYVAKIT [Suspect]
     Active Substance: AVAPRITINIB
     Indication: Systemic mastocytosis
     Route: 065
  2. AYVAKIT [Suspect]
     Active Substance: AVAPRITINIB
     Indication: Mast cell activation syndrome
     Route: 065
  3. AYVAKIT [Suspect]
     Active Substance: AVAPRITINIB
     Route: 065
     Dates: start: 202211
  4. AYVAKIT [Suspect]
     Active Substance: AVAPRITINIB
     Route: 065
  5. AYVAKIT [Suspect]
     Active Substance: AVAPRITINIB
     Route: 065
     Dates: start: 20230415

REACTIONS (4)
  - Illness [Unknown]
  - Symptom recurrence [Unknown]
  - Adverse drug reaction [Unknown]
  - Drug ineffective [Unknown]
